FAERS Safety Report 18763209 (Version 2)
Quarter: 2021Q1

REPORT INFORMATION
  Report Type: Spontaneous
  Country: PL (occurrence: PL)
  Receive Date: 20210120
  Receipt Date: 20210128
  Transmission Date: 20210419
  Serious: Yes (Life-Threatening, Hospitalization)
  Sender: FDA-Public Use
  Company Number: PL-TEVA-2021-PL-1868859

PATIENT
  Age: 42 Year
  Sex: Female

DRUGS (4)
  1. OLANZAPINE. [Concomitant]
     Active Substance: OLANZAPINE
     Indication: MOOD SWINGS
  2. LAMOTRIGINE. [Concomitant]
     Active Substance: LAMOTRIGINE
     Indication: MOOD SWINGS
  3. VALPROATE [Concomitant]
     Active Substance: VALPROIC ACID
     Indication: MOOD SWINGS
  4. VENLAFAXINE [Suspect]
     Active Substance: VENLAFAXINE HYDROCHLORIDE
     Indication: MOOD SWINGS
     Dosage: 225 MILLIGRAM DAILY;

REACTIONS (2)
  - Mood swings [Recovering/Resolving]
  - Drug ineffective [Unknown]
